FAERS Safety Report 6219150-2 (Version None)
Quarter: 2009Q2

REPORT INFORMATION
  Report Type: 
  Country: None (occurrence: None)
  Receive Date: 20090605
  Receipt Date: 20090605
  Transmission Date: 20091009
  Serious: Yes (Life-Threatening, Hospitalization, Other)
  Sender: FDA-Public Use
  Company Number: None

PATIENT
  Age: 34 Year
  Sex: Female
  Weight: 64.8644 kg

DRUGS (4)
  1. CYTOTEC [Suspect]
     Indication: PLACENTA ACCRETA
     Dosage: 100 MCG PR IN RECOVERY ROOM 600 MCG PO @ 0600 ON 5/28 X 1 DOSE
     Route: 048
     Dates: start: 20090527
  2. CYTOTEC [Suspect]
     Indication: VAGINAL HAEMORRHAGE
     Dosage: 100 MCG PR IN RECOVERY ROOM 600 MCG PO @ 0600 ON 5/28 X 1 DOSE
     Route: 048
     Dates: start: 20090527
  3. CYTOTEC [Suspect]
     Indication: PLACENTA ACCRETA
     Dosage: 100 MCG PR IN RECOVERY ROOM 600 MCG PO @ 0600 ON 5/28 X 1 DOSE
     Route: 048
     Dates: start: 20090528
  4. CYTOTEC [Suspect]
     Indication: VAGINAL HAEMORRHAGE
     Dosage: 100 MCG PR IN RECOVERY ROOM 600 MCG PO @ 0600 ON 5/28 X 1 DOSE
     Route: 048
     Dates: start: 20090528

REACTIONS (5)
  - CONVULSION [None]
  - HYPERTENSION [None]
  - HYPOTENSION [None]
  - PYREXIA [None]
  - RESPIRATORY DISTRESS [None]
